FAERS Safety Report 8141783-7 (Version None)
Quarter: 2012Q1

REPORT INFORMATION
  Report Type: 
  Country: None (occurrence: None)
  Receive Date: 20120216
  Receipt Date: 20120213
  Transmission Date: 20120608
  Serious: No
  Sender: FDA-Public Use
  Company Number: US-TEVA-322733USA

PATIENT
  Sex: Female
  Weight: 90.8 kg

DRUGS (4)
  1. MINI-PILL [Concomitant]
     Indication: CONTRACEPTION
  2. PLAN B ONE-STEP [Suspect]
     Indication: POST COITAL CONTRACEPTION
     Dosage: 1.5 MILLIGRAM;
     Route: 048
     Dates: start: 20120113, end: 20120113
  3. ACETAMINOPHEN [Concomitant]
     Indication: MIGRAINE
  4. IBUPROFEN (ADVIL) [Concomitant]
     Indication: MIGRAINE

REACTIONS (1)
  - MENSTRUATION DELAYED [None]
